FAERS Safety Report 5880063-7 (Version None)
Quarter: 2008Q3

REPORT INFORMATION
  Report Type: 
  Country: None (occurrence: None)
  Receive Date: 20080912
  Receipt Date: 20080902
  Transmission Date: 20090109
  Serious: Yes (Life-Threatening, Hospitalization)
  Sender: FDA-Public Use
  Company Number: ES-PFIZER INC-2008061617

PATIENT
  Age: 42 Year
  Sex: Female

DRUGS (9)
  1. RELPAX [Suspect]
     Indication: MIGRAINE
     Route: 048
     Dates: start: 20080606, end: 20080607
  2. ALAPRYL [Interacting]
     Dosage: DAILY DOSE:40MG
     Route: 048
  3. DOBUPAL [Interacting]
     Route: 048
     Dates: end: 20080607
  4. PRIMPERAN INJ [Interacting]
     Dates: start: 20080101
  5. STRATTERA [Interacting]
     Dosage: DAILY DOSE:100MG
     Route: 048
     Dates: end: 20080607
  6. VOLTAREN [Interacting]
     Route: 048
  7. ACETAMINOPHEN [Concomitant]
  8. PANTOPRAZOLE [Concomitant]
  9. DUPHALAC [Concomitant]

REACTIONS (2)
  - ACUTE CORONARY SYNDROME [None]
  - DRUG INTERACTION [None]
